FAERS Safety Report 21583051 (Version 1)
Quarter: 2022Q4

REPORT INFORMATION
  Report Type: Spontaneous
  Country: US (occurrence: None)
  Receive Date: 20221110
  Receipt Date: 20221110
  Transmission Date: 20230112
  Serious: Yes (Hospitalization)
  Sender: FDA-Public Use
  Company Number: None

PATIENT
  Age: 73 Year
  Sex: Male

DRUGS (2)
  1. TACROLIMUS [Suspect]
     Active Substance: TACROLIMUS
     Indication: Renal transplant
     Dosage: FREQUENCY : TWICE A DAY;?
     Route: 048
     Dates: start: 20200615, end: 20221104
  2. NIFEDIPINE [Suspect]
     Active Substance: NIFEDIPINE
     Indication: Hypertension
     Dosage: FREQUENCY : TWICE A DAY;?
     Route: 048
     Dates: start: 20200522

REACTIONS (8)
  - Hyperglycaemia [None]
  - Tremor [None]
  - Hyperkalaemia [None]
  - Hypotension [None]
  - Tachycardia [None]
  - Pruritus [None]
  - Blood creatinine increased [None]
  - Blood urea increased [None]

NARRATIVE: CASE EVENT DATE: 20221103
